FAERS Safety Report 8033924-7 (Version None)
Quarter: 2012Q1

REPORT INFORMATION
  Report Type: 
  Country: None (occurrence: None)
  Receive Date: 20120110
  Receipt Date: 20120110
  Transmission Date: 20120608
  Serious: Yes (Death)
  Sender: FDA-Public Use
  Company Number: JP-PFIZER INC-2011302821

PATIENT
  Age: 63 Year
  Sex: Male

DRUGS (3)
  1. MEDIPEACE [Suspect]
     Dosage: UNK
     Route: 048
  2. LENDORMIN [Suspect]
     Dosage: UNK
     Route: 048
  3. VARENICLINE TARTRATE [Suspect]
     Dosage: 2 MG, 1X/DAY
     Route: 048
     Dates: end: 20100524

REACTIONS (1)
  - ROAD TRAFFIC ACCIDENT [None]
